FAERS Safety Report 9261566 (Version 3)
Quarter: 2014Q2

REPORT INFORMATION
  Report Type: Spontaneous
  Country: US (occurrence: US)
  Receive Date: 20130429
  Receipt Date: 20140423
  Transmission Date: 20141212
  Serious: No
  Sender: FDA-Public Use
  Company Number: US-009507513-1304USA014198

PATIENT
  Sex: Male
  Weight: 91.16 kg

DRUGS (4)
  1. PROSCAR [Suspect]
     Indication: ALOPECIA
     Dosage: 5 MG, UNK
     Route: 048
     Dates: start: 20000326, end: 20040901
  2. PROSCAR [Suspect]
     Dosage: 1.25 MG, QD
     Route: 048
     Dates: start: 20010326
  3. PROSCAR [Suspect]
     Dosage: 2.5 MG, QOD
     Route: 048
     Dates: start: 20030710
  4. ADDERALL TABLETS [Concomitant]
     Indication: ATTENTION DEFICIT/HYPERACTIVITY DISORDER
     Dosage: 20 MG, BID
     Route: 048
     Dates: start: 199906

REACTIONS (21)
  - Androgen deficiency [Unknown]
  - Testicular mass [Unknown]
  - Hydrocele [Unknown]
  - Drug administration error [Unknown]
  - Wrong technique in drug usage process [Unknown]
  - Wrong technique in drug usage process [Unknown]
  - Asthenia [Unknown]
  - Blood cholesterol increased [Unknown]
  - Traumatic arthritis [Unknown]
  - Arthropod bite [Unknown]
  - Arthroscopy [Unknown]
  - Chest discomfort [Unknown]
  - Hypertension [Unknown]
  - Cyst removal [Unknown]
  - Cataract operation [Unknown]
  - Sexual dysfunction [Not Recovered/Not Resolved]
  - Erectile dysfunction [Not Recovered/Not Resolved]
  - Libido decreased [Unknown]
  - Depression [Unknown]
  - Drug ineffective [Unknown]
  - Drug ineffective [Unknown]
